FAERS Safety Report 6191913-1 (Version None)
Quarter: 2009Q2

REPORT INFORMATION
  Report Type: 
  Country: None (occurrence: None)
  Receive Date: 20090515
  Receipt Date: 20090504
  Transmission Date: 20091009
  Serious: Yes (Other)
  Sender: FDA-Public Use
  Company Number: FR-JNJFOC-20090501268

PATIENT

DRUGS (2)
  1. REMICADE [Suspect]
     Indication: SPONDYLOARTHROPATHY
     Route: 042
  2. ETANERCEPT [Suspect]
     Indication: SPONDYLOARTHROPATHY

REACTIONS (2)
  - ANAPHYLACTIC REACTION [None]
  - INFLAMMATORY BOWEL DISEASE [None]
